FAERS Safety Report 16663232 (Version 1)
Quarter: 2019Q3

REPORT INFORMATION
  Report Type: Spontaneous
  Country: GB (occurrence: GB)
  Receive Date: 20190802
  Receipt Date: 20190802
  Transmission Date: 20191004
  Serious: Yes (Other)
  Sender: FDA-Public Use
  Company Number: GB-MYLANLABS-2019M1071449

PATIENT
  Sex: Female

DRUGS (20)
  1. FLUOROURACIL. [Suspect]
     Active Substance: FLUOROURACIL
     Indication: COLORECTAL CANCER METASTATIC
     Dosage: UNK
  2. VECTIBIX [Suspect]
     Active Substance: PANITUMUMAB
     Indication: METASTASES TO LYMPH NODES
     Dosage: UNK
  3. IRINOTECAN [Suspect]
     Active Substance: IRINOTECAN
     Indication: METASTASES TO LIVER
     Dosage: UNK
  4. FOLINIC ACID [Suspect]
     Active Substance: LEUCOVORIN
     Indication: METASTASES TO LYMPH NODES
     Dosage: UNK
  5. FLUOROURACIL. [Suspect]
     Active Substance: FLUOROURACIL
     Indication: METASTASES TO LYMPH NODES
     Dosage: UNK
  6. IRINOTECAN [Suspect]
     Active Substance: IRINOTECAN
     Indication: METASTASES TO BONE
     Dosage: UNK UNK, CYCLICAL (SIX CYCLES, DOSE TITRATION)
     Dates: start: 201712
  7. FOLINIC ACID [Suspect]
     Active Substance: LEUCOVORIN
     Indication: METASTASES TO LIVER
     Dosage: UNK
  8. FLUOROURACIL. [Suspect]
     Active Substance: FLUOROURACIL
     Indication: METASTASES TO BONE
     Dosage: UNK UNK, CYCLICAL (SIX CYCLES, DOSE TITRATION)
     Dates: start: 201712
  9. FLUOROURACIL. [Suspect]
     Active Substance: FLUOROURACIL
     Indication: METASTASES TO LIVER
     Dosage: UNK
  10. IRINOTECAN [Suspect]
     Active Substance: IRINOTECAN
     Indication: METASTASES TO LYMPH NODES
     Dosage: UNK
  11. IRINOTECAN [Suspect]
     Active Substance: IRINOTECAN
     Indication: METASTASES TO ADRENALS
     Dosage: UNK
  12. FOLINIC ACID [Suspect]
     Active Substance: LEUCOVORIN
     Indication: METASTASES TO ADRENALS
     Dosage: UNK UNK, CYCLICAL (SIX CYCLES, DOSE TITRATION)
     Dates: start: 201712
  13. VECTIBIX [Suspect]
     Active Substance: PANITUMUMAB
     Indication: METASTASES TO LIVER
     Dosage: UNK
  14. VECTIBIX [Suspect]
     Active Substance: PANITUMUMAB
     Indication: METASTASES TO ADRENALS
     Dosage: UNK
  15. IRINOTECAN [Suspect]
     Active Substance: IRINOTECAN
     Indication: COLORECTAL CANCER METASTATIC
     Dosage: UNK
  16. FOLINIC ACID [Suspect]
     Active Substance: LEUCOVORIN
     Indication: COLORECTAL CANCER METASTATIC
     Dosage: UNK
  17. FOLINIC ACID [Suspect]
     Active Substance: LEUCOVORIN
     Indication: METASTASES TO BONE
     Dosage: UNK
  18. VECTIBIX [Suspect]
     Active Substance: PANITUMUMAB
     Indication: METASTASES TO BONE
     Dosage: UNK, CYCLICAL (SIX CYCLES, DOSE TITRATION)
     Dates: start: 201712
  19. VECTIBIX [Suspect]
     Active Substance: PANITUMUMAB
     Indication: COLORECTAL CANCER METASTATIC
     Dosage: UNK
  20. FLUOROURACIL. [Suspect]
     Active Substance: FLUOROURACIL
     Indication: METASTASES TO ADRENALS
     Dosage: UNK

REACTIONS (25)
  - Rash pustular [Unknown]
  - Gastrointestinal disorder [Unknown]
  - Stomatitis [Unknown]
  - Taste disorder [Unknown]
  - Visual impairment [Unknown]
  - Cystitis [Unknown]
  - Hair growth abnormal [Unknown]
  - Abdominal pain [Unknown]
  - Erythema [Unknown]
  - Paronychia [Unknown]
  - Osteosclerosis [Unknown]
  - Rash [Unknown]
  - Alopecia [Unknown]
  - Pain of skin [Unknown]
  - Diarrhoea [Unknown]
  - Dry skin [Unknown]
  - Self esteem decreased [Unknown]
  - Psychiatric symptom [Unknown]
  - Eye pain [Unknown]
  - Fatigue [Unknown]
  - Decreased appetite [Unknown]
  - Nausea [Unknown]
  - Skin fissures [Unknown]
  - Photosensitivity reaction [Unknown]
  - Neutropenia [Unknown]
